FAERS Safety Report 8436285-4 (Version None)
Quarter: 2012Q2

REPORT INFORMATION
  Report Type: 
  Country: None (occurrence: None)
  Receive Date: 20120614
  Receipt Date: 20120606
  Transmission Date: 20120825
  Serious: Yes (Hospitalization)
  Sender: FDA-Public Use
  Company Number: JP-ROCHE-603228

PATIENT
  Sex: Female

DRUGS (18)
  1. ACTEMRA [Suspect]
     Route: 041
     Dates: start: 20081107, end: 20081107
  2. ARAVA [Concomitant]
     Route: 048
     Dates: start: 20080704, end: 20081017
  3. ACTEMRA [Suspect]
     Route: 041
     Dates: start: 20090306, end: 20090609
  4. ACTEMRA [Suspect]
     Indication: RHEUMATOID ARTHRITIS
     Route: 041
     Dates: start: 20080811, end: 20080811
  5. ACTEMRA [Suspect]
     Route: 041
     Dates: start: 20081201, end: 20081201
  6. ACTEMRA [Suspect]
     Route: 041
     Dates: start: 20090731, end: 20100105
  7. PREDNISOLONE [Suspect]
     Indication: RHEUMATOID ARTHRITIS
     Dosage: DOSE FORM: PERORAL AGENT.
     Route: 048
  8. ADALIMUMAB [Suspect]
     Indication: RHEUMATOID ARTHRITIS
     Route: 042
     Dates: start: 20100407, end: 20100421
  9. ALFAROL [Concomitant]
     Route: 048
  10. VOLTAREN [Concomitant]
     Route: 048
  11. ADALIMUMAB [Suspect]
     Route: 042
     Dates: start: 20100606
  12. ACTEMRA [Suspect]
     Route: 041
     Dates: start: 20090123, end: 20090123
  13. ACTEMRA [Suspect]
     Route: 041
     Dates: start: 20090731, end: 20100115
  14. FAMOTIDINE [Concomitant]
     Dosage: DOSE FORM: PERORAL AGENT.
     Route: 048
  15. ACTEMRA [Suspect]
     Route: 041
     Dates: start: 20081006, end: 20081006
  16. PREDNISOLONE [Suspect]
     Route: 048
  17. FAMOTIDINE [Concomitant]
     Route: 048
  18. PREDNISOLONE [Suspect]
     Route: 048
     Dates: start: 20081201, end: 20090115

REACTIONS (6)
  - ENTERITIS INFECTIOUS [None]
  - ENTEROCOLITIS [None]
  - WHITE BLOOD CELL COUNT DECREASED [None]
  - UPPER RESPIRATORY TRACT INFECTION [None]
  - ANGINA PECTORIS [None]
  - PERIODONTITIS [None]
